FAERS Safety Report 10538039 (Version 2)
Quarter: 2015Q1

REPORT INFORMATION
  Report Type: Spontaneous
  Country: IT (occurrence: IT)
  Receive Date: 20141023
  Receipt Date: 20150203
  Transmission Date: 20150720
  Serious: Yes (Hospitalization)
  Sender: FDA-Public Use
  Company Number: IT-BRACCO-003978

PATIENT
  Age: 77 Year
  Sex: Male

DRUGS (7)
  1. KARVEA [Concomitant]
     Active Substance: IRBESARTAN
  2. ALLOPURINOL. [Concomitant]
     Active Substance: ALLOPURINOL
  3. MULTIHANCE [Suspect]
     Active Substance: GADOBENATE DIMEGLUMINE
     Route: 042
     Dates: start: 20131218, end: 20131218
  4. SEACOR [Concomitant]
     Active Substance: OMEGA-3 FATTY ACIDS
  5. CARDIOASPIRIN [Concomitant]
     Active Substance: ASPIRIN
  6. BENUR [Concomitant]
     Active Substance: DOXAZOSIN MESYLATE
  7. LASIX [Concomitant]
     Active Substance: FUROSEMIDE

REACTIONS (6)
  - Malaise [Recovered/Resolved]
  - Faecal incontinence [Recovered/Resolved]
  - Feeling hot [Recovered/Resolved]
  - Pruritus [Recovered/Resolved]
  - Clonus [Recovered/Resolved]
  - Loss of consciousness [Recovered/Resolved]

NARRATIVE: CASE EVENT DATE: 20131218
